FAERS Safety Report 17998577 (Version 1)
Quarter: 2020Q3

REPORT INFORMATION
  Report Type: Spontaneous
  Country: US (occurrence: US)
  Receive Date: 20200709
  Receipt Date: 20200709
  Transmission Date: 20201103
  Serious: Yes (Other)
  Sender: FDA-Public Use
  Company Number: US-TEVA-2020-US-1798551

PATIENT
  Sex: Female

DRUGS (9)
  1. ABILIFY [Suspect]
     Active Substance: ARIPIPRAZOLE
     Route: 065
  2. NITROSTAT [Suspect]
     Active Substance: NITROGLYCERIN
     Route: 065
  3. ELAVIL [Suspect]
     Active Substance: AMITRIPTYLINE HYDROCHLORIDE
     Route: 065
  4. PRAVASTATIN. [Suspect]
     Active Substance: PRAVASTATIN
     Route: 065
  5. XANAX [Suspect]
     Active Substance: ALPRAZOLAM
     Route: 065
  6. HYDROCHLOROTHIAZIDE. [Suspect]
     Active Substance: HYDROCHLOROTHIAZIDE
     Route: 065
  7. LORTAB [Suspect]
     Active Substance: ACETAMINOPHEN\HYDROCODONE BITARTRATE
     Route: 065
  8. LISINOPRIL. [Suspect]
     Active Substance: LISINOPRIL
     Route: 065
  9. EFFEXOR [Suspect]
     Active Substance: VENLAFAXINE HYDROCHLORIDE
     Route: 065

REACTIONS (6)
  - Blood pressure abnormal [Unknown]
  - Fibromyalgia [Unknown]
  - Insomnia [Unknown]
  - Myalgia [Unknown]
  - Pericarditis [Unknown]
  - Arthralgia [Unknown]
